FAERS Safety Report 9395052 (Version 1)
Quarter: 2013Q3

REPORT INFORMATION
  Report Type: Spontaneous
  Country: FR (occurrence: FR)
  Receive Date: 20130711
  Receipt Date: 20130711
  Transmission Date: 20140515
  Serious: Yes (Life-Threatening, Hospitalization, Disabling)
  Sender: FDA-Public Use
  Company Number: FR-PFIZER INC-FR-WYE-G06620310

PATIENT
  Age: 17 Year
  Sex: Female

DRUGS (5)
  1. ENBREL [Suspect]
     Indication: JUVENILE IDIOPATHIC ARTHRITIS
     Dosage: 25 MG, 2X/WEEK
     Route: 058
     Dates: start: 2000, end: 2008
  2. ENBREL [Suspect]
     Dosage: 25 MG, 2X/WEEK
     Route: 058
     Dates: start: 2009, end: 20100602
  3. ADVIL [Suspect]
     Dosage: UNKNOWN
     Route: 048
     Dates: start: 20100502, end: 20100509
  4. ASPEGIC [Suspect]
     Dosage: UNKNOWN
     Route: 048
     Dates: start: 20100502, end: 20100509
  5. PARACETAMOL [Concomitant]
     Dosage: UNK
     Route: 048
     Dates: start: 20100502

REACTIONS (15)
  - Pneumocystis jirovecii pneumonia [Recovered/Resolved]
  - Delusion [Recovered/Resolved]
  - Multi-organ failure [Recovered/Resolved]
  - Renal failure acute [Recovered/Resolved]
  - Bacterial sepsis [Recovered/Resolved]
  - Acute respiratory distress syndrome [Recovered/Resolved]
  - Disease progression [Recovered/Resolved with Sequelae]
  - Psoas abscess [Recovered/Resolved]
  - Muscle abscess [Recovered/Resolved]
  - Immune thrombocytopenic purpura [Recovered/Resolved]
  - Jugular vein thrombosis [Recovered/Resolved]
  - Vascular complication associated with device [Recovered/Resolved]
  - Dehydration [Recovered/Resolved]
  - Epistaxis [Recovered/Resolved]
  - Hypotension [Recovered/Resolved]
